FAERS Safety Report 8116700-6 (Version None)
Quarter: 2012Q1

REPORT INFORMATION
  Report Type: 
  Country: None (occurrence: None)
  Receive Date: 20120206
  Receipt Date: 20120127
  Transmission Date: 20120608
  Serious: Yes (Other)
  Sender: FDA-Public Use
  Company Number: PHFR2012GB000954

PATIENT
  Sex: Male

DRUGS (2)
  1. AFINITOR [Suspect]
  2. AFINITOR [Suspect]
     Indication: RENAL CELL CARCINOMA

REACTIONS (2)
  - PNEUMONITIS [None]
  - JOINT INJURY [None]
